FAERS Safety Report 6604411-5 (Version None)
Quarter: 2010Q1

REPORT INFORMATION
  Report Type: 
  Country: None (occurrence: None)
  Receive Date: 20100226
  Receipt Date: 20090924
  Transmission Date: 20100710
  Serious: No
  Sender: FDA-Public Use
  Company Number: A0808874A

PATIENT
  Age: 25 Year
  Sex: Male

DRUGS (3)
  1. LAMICTAL CD [Suspect]
     Indication: EPILEPSY
     Dosage: 50MG TWICE PER DAY
     Route: 048
     Dates: start: 20090601, end: 20090912
  2. KEPPRA [Concomitant]
  3. DILANTIN [Concomitant]

REACTIONS (1)
  - INSOMNIA [None]
